FAERS Safety Report 8610632-2 (Version None)
Quarter: 2012Q3

REPORT INFORMATION
  Report Type: 
  Country: None (occurrence: None)
  Receive Date: 20120822
  Receipt Date: 20120815
  Transmission Date: 20120928
  Serious: Yes (Other)
  Sender: FDA-Public Use
  Company Number: US-BAYER-2012-084131

PATIENT
  Age: 61 Year
  Sex: Male

DRUGS (2)
  1. NEXAVAR [Suspect]
     Indication: HEPATIC NEOPLASM MALIGNANT
     Dosage: 400 MG, BID
     Route: 048
  2. NEXAVAR [Suspect]
     Dosage: 400 MG AM + 200 MG PM
     Route: 048
     Dates: end: 20120701

REACTIONS (3)
  - APHAGIA [None]
  - BLOOD BILIRUBIN INCREASED [None]
  - BEDRIDDEN [None]
